FAERS Safety Report 6683983-9 (Version None)
Quarter: 2010Q2

REPORT INFORMATION
  Report Type: 
  Country: None (occurrence: None)
  Receive Date: 20100416
  Receipt Date: 20100408
  Transmission Date: 20101027
  Serious: Yes (Hospitalization)
  Sender: FDA-Public Use
  Company Number: US-KINGPHARMUSA00001-K201000417

PATIENT
  Sex: Male

DRUGS (4)
  1. CORGARD [Suspect]
     Dosage: 1120 MG, SINGLE
     Route: 048
     Dates: start: 20100208, end: 20100208
  2. CORGARD [Suspect]
     Dosage: 80 MG, QD
     Route: 048
  3. TETRAZEPAM BAYER [Suspect]
     Dosage: 100 MG, SINGLE
     Dates: start: 20100208, end: 20100208
  4. ALCOHOL [Suspect]
     Dosage: UNK
     Dates: start: 20100208

REACTIONS (6)
  - BLOOD PRESSURE IMMEASURABLE [None]
  - BLOOD PRESSURE INCREASED [None]
  - BRADYCARDIA [None]
  - HYPOTENSION [None]
  - INTENTIONAL OVERDOSE [None]
  - VOMITING [None]
